FAERS Safety Report 22022649 (Version 1)
Quarter: 2023Q1

REPORT INFORMATION
  Report Type: Spontaneous
  Country: US (occurrence: US)
  Receive Date: 20230222
  Receipt Date: 20230222
  Transmission Date: 20230417
  Serious: No
  Sender: FDA-Public Use
  Company Number: US-SA-SAC20230221000160

PATIENT
  Age: 22 Year
  Sex: Female
  Weight: 180 kg

DRUGS (4)
  1. DUPIXENT [Suspect]
     Active Substance: DUPILUMAB
     Indication: Illness
     Dosage: 300 MG, QOW
     Route: 058
  2. DUPIXENT [Suspect]
     Active Substance: DUPILUMAB
     Indication: Dermatitis atopic
  3. MELOXICAM [Concomitant]
     Active Substance: MELOXICAM
  4. EUCRISA [Concomitant]
     Active Substance: CRISABOROLE

REACTIONS (1)
  - Injection site pain [Unknown]
